FAERS Safety Report 5098679-7 (Version None)
Quarter: 2006Q3

REPORT INFORMATION
  Report Type: 
  Country: None (occurrence: None)
  Receive Date: 20060905
  Receipt Date: 20060821
  Transmission Date: 20061208
  Serious: Yes (Other)
  Sender: FDA-Public Use
  Company Number: 2006SP000056

PATIENT
  Age: 46 Year
  Sex: Female
  Weight: 61.2356 kg

DRUGS (2)
  1. PEG-INTRON [Suspect]
     Indication: HEPATITIS C
     Dosage: SC
     Route: 058
     Dates: start: 20060201, end: 20060423
  2. RIBAVIRIN [Suspect]
     Indication: HEPATITIS C
     Dosage: PO
     Route: 048
     Dates: start: 20060201, end: 20060423

REACTIONS (19)
  - APATHY [None]
  - APHAGIA [None]
  - ATTENTION DEFICIT/HYPERACTIVITY DISORDER [None]
  - CONDITION AGGRAVATED [None]
  - CRYING [None]
  - EMOTIONAL DISORDER [None]
  - EUPHORIC MOOD [None]
  - FEAR [None]
  - INSOMNIA [None]
  - MONOPLEGIA [None]
  - MULTIPLE SCLEROSIS [None]
  - MUSCLE CONTRACTURE [None]
  - MUSCLE DISORDER [None]
  - PARANOIA [None]
  - SCREAMING [None]
  - SPEECH DISORDER [None]
  - SWOLLEN TONGUE [None]
  - VOMITING [None]
  - WEIGHT DECREASED [None]
